FAERS Safety Report 5792032-6 (Version None)
Quarter: 2008Q2

REPORT INFORMATION
  Report Type: 
  Country: None (occurrence: None)
  Receive Date: 20080626
  Receipt Date: 20080617
  Transmission Date: 20081010
  Serious: Yes (Hospitalization, Other)
  Sender: FDA-Public Use
  Company Number: PHEH2007US05468

PATIENT
  Sex: Male

DRUGS (2)
  1. TYZEKA [Suspect]
     Indication: PROPHYLAXIS
     Dosage: UNK, UNK
     Route: 064
     Dates: start: 20070126
  2. TYZEKA [Suspect]
     Dosage: UNK, UNK
     Dates: end: 20070402

REACTIONS (6)
  - BRAIN OEDEMA [None]
  - CEREBRAL CYST [None]
  - CYANOSIS NEONATAL [None]
  - DRUG EXPOSURE DURING PREGNANCY [None]
  - DRUG EXPOSURE VIA BREAST MILK [None]
  - INFANTILE APNOEIC ATTACK [None]
